FAERS Safety Report 7511812-X (Version None)
Quarter: 2011Q2

REPORT INFORMATION
  Report Type: 
  Country: None (occurrence: None)
  Receive Date: 20110531
  Receipt Date: 20110524
  Transmission Date: 20111010
  Serious: Yes (Death)
  Sender: FDA-Public Use
  Company Number: FR-PFIZER INC-2011111334

PATIENT
  Sex: Female

DRUGS (2)
  1. SUTENT [Suspect]
     Indication: NEOPLASM MALIGNANT
     Dosage: 50 MG, UNK
  2. AVASTIN [Concomitant]
     Indication: NEOPLASM MALIGNANT

REACTIONS (1)
  - LARYNGEAL DYSPNOEA [None]
